FAERS Safety Report 21695071 (Version 1)
Quarter: 2022Q4

REPORT INFORMATION
  Report Type: Report from Study
  Country: US (occurrence: US)
  Receive Date: 20221207
  Receipt Date: 20221207
  Transmission Date: 20230113
  Serious: No
  Sender: FDA-Public Use
  Company Number: US-ABBVIE-4191322

PATIENT
  Sex: Female

DRUGS (1)
  1. HUMIRA [Suspect]
     Active Substance: ADALIMUMAB
     Indication: Hidradenitis
     Route: 058

REACTIONS (5)
  - Therapeutic product effect variable [Unknown]
  - Hidradenitis [Recovering/Resolving]
  - Unevaluable event [Recovering/Resolving]
  - Hormone level abnormal [Unknown]
  - Ulcer [Unknown]
